FAERS Safety Report 7642119-8 (Version None)
Quarter: 2011Q3

REPORT INFORMATION
  Report Type: 
  Country: None (occurrence: None)
  Receive Date: 20110728
  Receipt Date: 20110720
  Transmission Date: 20111222
  Serious: Yes (Hospitalization, Other)
  Sender: FDA-Public Use
  Company Number: FR-BRISTOL-MYERS SQUIBB COMPANY-15338486

PATIENT
  Age: 68 Year
  Sex: Female
  Weight: 64 kg

DRUGS (5)
  1. CACIT D3 [Concomitant]
     Dosage: 1 DF = 1 TABS
     Route: 048
     Dates: start: 20100101
  2. PREDNISONE [Concomitant]
     Indication: PYODERMA GANGRENOSUM
     Route: 048
     Dates: start: 20100908
  3. IPILIMUMAB [Suspect]
     Indication: MALIGNANT MELANOMA
     Dosage: 2ND + 3RD INFUSION BATCH NO: 9H45094 2ND INFUSION ON 02SEP10 3RD INFUSION ON 23SEP10
     Route: 042
     Dates: start: 20100806, end: 20100923
  4. TRAMADOL HCL [Concomitant]
     Indication: ANALGESIC THERAPY
     Route: 048
     Dates: start: 20100101
  5. ATORVASTATIN CALCIUM [Concomitant]
     Indication: HYPERCHOLESTEROLAEMIA
     Dosage: 1 DF = 1 TABS
     Route: 048
     Dates: start: 20090101

REACTIONS (2)
  - COLITIS [None]
  - DIARRHOEA [None]
